FAERS Safety Report 26175000 (Version 1)
Quarter: 2025Q4

REPORT INFORMATION
  Report Type: Report from Study
  Country: GB (occurrence: GB)
  Receive Date: 20251218
  Receipt Date: 20251218
  Transmission Date: 20260117
  Serious: Yes (Death)
  Sender: PFIZER
  Company Number: GB-PFIZER INC-PV202500148291

PATIENT
  Age: 89 Year
  Sex: Female

DRUGS (1)
  1. VYNDAQEL [Suspect]
     Active Substance: TAFAMIDIS MEGLUMINE
     Indication: Cardiac amyloidosis
     Dosage: 61 MG, 1X/DAY
     Dates: start: 202504, end: 202512

REACTIONS (1)
  - Death [Fatal]
